FAERS Safety Report 14381402 (Version 2)
Quarter: 2018Q2

REPORT INFORMATION
  Report Type: Spontaneous
  Country: IT (occurrence: IT)
  Receive Date: 20180112
  Receipt Date: 20180430
  Transmission Date: 20180711
  Serious: No
  Sender: FDA-Public Use
  Company Number: IT-BAYER-2017-198240

PATIENT
  Age: 63 Year
  Sex: Male

DRUGS (2)
  1. CIPROXIN [Suspect]
     Active Substance: CIPROFLOXACIN
     Indication: URETHRITIS
     Dosage: 1 DF, PRN
     Route: 048
     Dates: start: 20170817, end: 20170822
  2. IOPAMIDOL [Suspect]
     Active Substance: IOPAMIDOL
     Indication: COMPUTERISED TOMOGRAM
     Dosage: 1 DF, SINGLE
     Route: 042
     Dates: start: 20170822, end: 20170822

REACTIONS (2)
  - Localised oedema [Unknown]
  - Salivary gland pain [Unknown]

NARRATIVE: CASE EVENT DATE: 20170823
